FAERS Safety Report 7410034-0 (Version None)
Quarter: 2011Q2

REPORT INFORMATION
  Report Type: 
  Country: None (occurrence: None)
  Receive Date: 20110412
  Receipt Date: 20110405
  Transmission Date: 20111010
  Serious: Yes (Death, Life-Threatening)
  Sender: FDA-Public Use
  Company Number: ZW-GILEAD-2011-0038248

PATIENT
  Sex: Male
  Weight: 54.5 kg

DRUGS (7)
  1. NIFEDIPINE [Concomitant]
     Indication: HYPERTENSION
     Route: 048
     Dates: start: 20110101, end: 20110323
  2. COTRIM [Concomitant]
     Indication: ANTIFUNGAL PROPHYLAXIS
     Route: 048
     Dates: start: 20090101, end: 20110323
  3. MICONAZOLE [Concomitant]
     Indication: FUNGAL SKIN INFECTION
     Route: 061
     Dates: end: 20110323
  4. HYDROCHLOROTHIAZIDE [Concomitant]
     Indication: HYPERTENSION
     Route: 048
     Dates: start: 20101101, end: 20110323
  5. EMTRICITABINE/TENOFOVIR DISOPROXIL FUMARATE [Suspect]
     Indication: HIV INFECTION
     Route: 048
     Dates: start: 20110314, end: 20110323
  6. LOPINAVIR [Concomitant]
     Indication: HIV INFECTION
     Route: 048
     Dates: start: 20110314, end: 20110323
  7. RITONAVIR [Concomitant]
     Indication: HIV INFECTION
     Route: 048
     Dates: start: 20110314, end: 20110323

REACTIONS (1)
  - RENAL FAILURE [None]
